FAERS Safety Report 9647684 (Version 2)
Quarter: 2015Q1

REPORT INFORMATION
  Report Type: Spontaneous
  Country: GB (occurrence: GB)
  Receive Date: 20131028
  Receipt Date: 20150216
  Transmission Date: 20150721
  Serious: Yes (Disabling)
  Sender: FDA-Public Use
  Company Number: GB-BRACCO-000786

PATIENT
  Age: 73 Year
  Sex: Female
  Weight: 53 kg

DRUGS (15)
  1. BARIUM SULFATE [Suspect]
     Active Substance: BARIUM SULFATE
     Indication: DIAGNOSTIC PROCEDURE
     Route: 048
     Dates: start: 20131003, end: 20131003
  2. DIFFLAM [Concomitant]
     Active Substance: BENZYDAMINE HYDROCHLORIDE
  3. CALCICHEW D3 [Concomitant]
     Active Substance: CALCIUM\CHOLECALCIFEROL
  4. LANSOPRAZOLE. [Concomitant]
     Active Substance: LANSOPRAZOLE
  5. FOLIC ACID. [Concomitant]
     Active Substance: FOLIC ACID
  6. PREDNISOLON [Concomitant]
     Active Substance: PREDNISOLONE
  7. NUTRIENTS NOS [Concomitant]
     Active Substance: UNSPECIFIED INGREDIENT
  8. FERROUS FUMARATE [Concomitant]
     Active Substance: FERROUS FUMARATE
  9. ZAPAIN [Concomitant]
     Active Substance: ACETAMINOPHEN\CODEINE PHOSPHATE
  10. METOJECT [Concomitant]
     Active Substance: METHOTREXATE SODIUM
  11. ALVERINE CITRATE [Concomitant]
     Active Substance: ALVERINE CITRATE
  12. MAGNESIUM HYDROXIDE. [Concomitant]
     Active Substance: MAGNESIUM HYDROXIDE
  13. FORCEVAL [Concomitant]
     Active Substance: FOLIC ACID\IRON\MINERALS\VITAMINS
  14. LISINOPRIL. [Concomitant]
     Active Substance: LISINOPRIL
  15. LEVOTHYROXINE SODIUM. [Concomitant]
     Active Substance: LEVOTHYROXINE SODIUM

REACTIONS (4)
  - Abdominal pain [Unknown]
  - Malaise [Unknown]
  - Abdominal distension [Unknown]
  - Eye pain [Unknown]

NARRATIVE: CASE EVENT DATE: 20131003
